FAERS Safety Report 21172489 (Version 1)
Quarter: 2022Q3

REPORT INFORMATION
  Report Type: Spontaneous
  Country: US (occurrence: US)
  Receive Date: 20220804
  Receipt Date: 20220804
  Transmission Date: 20221027
  Serious: Yes (Other)
  Sender: FDA-Public Use
  Company Number: US-ELI_LILLY_AND_COMPANY-US202207011500

PATIENT
  Sex: Female

DRUGS (2)
  1. HUMALOG [Suspect]
     Active Substance: INSULIN LISPRO
     Indication: Diabetes mellitus
     Dosage: 10 U, UNKNOWN
     Route: 058
     Dates: start: 2018
  2. HUMALOG [Suspect]
     Active Substance: INSULIN LISPRO
     Dosage: 10 U, UNKNOWN
     Route: 058
     Dates: start: 2018

REACTIONS (1)
  - Eye disorder [Unknown]
